FAERS Safety Report 14789838 (Version 2)
Quarter: 2018Q2

REPORT INFORMATION
  Report Type: Spontaneous
  Country: US (occurrence: US)
  Receive Date: 20180423
  Receipt Date: 20180427
  Transmission Date: 20180711
  Serious: No
  Sender: FDA-Public Use
  Company Number: US-PFIZER INC-2018163828

PATIENT
  Age: 64 Year
  Sex: Female

DRUGS (8)
  1. COQ 10 [Concomitant]
     Active Substance: UBIDECARENONE
     Dosage: 100 MG, DAILY
  2. FISH OIL [Concomitant]
     Active Substance: FISH OIL
     Dosage: 1200 MG, DAILY
  3. LECITHIN [Concomitant]
     Active Substance: LECITHIN
     Dosage: 1200 MG, DAILY
  4. FLAXSEED [Concomitant]
     Active Substance: FLAX SEED
     Dosage: 1000 MG, DAILY
  5. VITAMIN E [Concomitant]
     Active Substance: .ALPHA.-TOCOPHEROL
     Dosage: 400 IU, DAILY
  6. GARLIC. [Concomitant]
     Active Substance: GARLIC
     Dosage: 500 MG, DAILY
  7. CINNAMON. [Concomitant]
     Active Substance: CINNAMON
     Dosage: 500 MG, DAILY
  8. LIPITOR [Suspect]
     Active Substance: ATORVASTATIN CALCIUM
     Dosage: UNK

REACTIONS (2)
  - Loss of personal independence in daily activities [Recovered/Resolved]
  - Myalgia [Recovered/Resolved]
